FAERS Safety Report 11622015 (Version 1)
Quarter: 2015Q4

REPORT INFORMATION
  Report Type: Spontaneous
  Country: US (occurrence: US)
  Receive Date: 20151013
  Receipt Date: 20151013
  Transmission Date: 20160304
  Serious: No
  Sender: FDA-Public Use
  Company Number: US-JNJFOC-20150103045

PATIENT
  Age: 18 Month
  Sex: Female
  Weight: 11.79 kg

DRUGS (3)
  1. INFANTS TYLENOL [Suspect]
     Active Substance: ACETAMINOPHEN
     Indication: RHINORRHOEA
     Dosage: TOTAL OF 3 DOSES
     Route: 048
     Dates: start: 20141231, end: 20150101
  2. INFANTS TYLENOL [Suspect]
     Active Substance: ACETAMINOPHEN
     Indication: COUGH
     Dosage: TOTAL OF 3 DOSES
     Route: 048
     Dates: start: 20141231, end: 20150101
  3. INFANTS TYLENOL [Suspect]
     Active Substance: ACETAMINOPHEN
     Indication: PYREXIA
     Dosage: TOTAL OF 3 DOSES
     Route: 048
     Dates: start: 20141231, end: 20150101

REACTIONS (3)
  - Urticaria [Recovering/Resolving]
  - Lip swelling [Recovering/Resolving]
  - Stomatitis [Recovering/Resolving]

NARRATIVE: CASE EVENT DATE: 20150101
